FAERS Safety Report 7367135-5 (Version None)
Quarter: 2011Q1

REPORT INFORMATION
  Report Type: 
  Country: None (occurrence: None)
  Receive Date: 20110322
  Receipt Date: 20110314
  Transmission Date: 20110831
  Serious: Yes (Hospitalization)
  Sender: FDA-Public Use
  Company Number: JP-PFIZER INC-2011054996

PATIENT

DRUGS (2)
  1. GELATIN [Suspect]
  2. EPIRUBICIN HYDROCHLORIDE [Suspect]
     Dosage: UNK
     Dates: start: 20110307, end: 20110307

REACTIONS (1)
  - CHOLECYSTITIS ACUTE [None]
